FAERS Safety Report 19634912 (Version 1)
Quarter: 2021Q3

REPORT INFORMATION
  Report Type: Spontaneous
  Country: US (occurrence: US)
  Receive Date: 20210730
  Receipt Date: 20210730
  Transmission Date: 20211014
  Serious: Yes (Death)
  Sender: FDA-Public Use
  Company Number: None

PATIENT
  Age: 49 Year
  Sex: Male

DRUGS (2)
  1. CAPECITABINE. [Suspect]
     Active Substance: CAPECITABINE
     Indication: PAIN
     Dosage: ?          OTHER FREQUENCY:TAKE 4TABS BID;?
     Route: 048
  2. MORPHINE SUL SOL 100/5ML [Concomitant]
     Active Substance: MORPHINE SULFATE
     Dates: start: 20210721

REACTIONS (1)
  - Death [None]

NARRATIVE: CASE EVENT DATE: 20210729
